FAERS Safety Report 8915872 (Version 3)
Quarter: 2013Q1

REPORT INFORMATION
  Report Type: Spontaneous
  Country: US (occurrence: US)
  Receive Date: 20121119
  Receipt Date: 20130118
  Transmission Date: 20140127
  Serious: Yes (Other)
  Sender: FDA-Public Use
  Company Number: US-PFIZER INC-2012288032

PATIENT
  Sex: Female

DRUGS (2)
  1. LYRICA [Suspect]
     Indication: SLEEP DISORDER
     Dosage: 50 MG, UNK
     Dates: start: 201208
  2. LYRICA [Suspect]
     Dosage: 25 MG, UNK

REACTIONS (5)
  - Eye irritation [Not Recovered/Not Resolved]
  - Vision blurred [Recovering/Resolving]
  - Dry eye [Not Recovered/Not Resolved]
  - Weight increased [Recovered/Resolved]
  - Off label use [Unknown]
